FAERS Safety Report 7731717-9 (Version None)
Quarter: 2011Q3

REPORT INFORMATION
  Report Type: 
  Country: None (occurrence: None)
  Receive Date: 20110906
  Receipt Date: 20110829
  Transmission Date: 20111222
  Serious: Yes (Hospitalization)
  Sender: FDA-Public Use
  Company Number: PHHY2011FR17164

PATIENT
  Sex: Female

DRUGS (9)
  1. VOLTAREN [Suspect]
     Dosage: UNK UKN, UNK
     Route: 048
     Dates: end: 20110113
  2. RIFAMPIN AND ISONIAZID [Suspect]
     Dosage: UNK UKN, UNK
     Route: 048
     Dates: start: 20110501
  3. HUMIRA [Concomitant]
     Dosage: UNK UKN, UNK
  4. LEVOTHYROXINE SODIUM [Concomitant]
     Dosage: UNK UKN, UNK
  5. CALCIUM CARBONATE [Concomitant]
     Dosage: UNK UKN, UNK
  6. ACETAMINOPHEN W/ PROPOXYPHENE HCL [Suspect]
     Dosage: UNK UKN, UNK
     Route: 048
     Dates: end: 20110113
  7. CRESTOR [Concomitant]
     Dosage: UNK UKN, UNK
  8. RIFAMPIN AND ISONIAZID [Suspect]
     Dosage: UNK UKN, UNK
     Route: 048
     Dates: start: 20101001, end: 20110113
  9. SORIATANE [Concomitant]
     Dosage: UNK UKN, UNK

REACTIONS (12)
  - RASH PAPULAR [None]
  - PYREXIA [None]
  - ERYTHEMA [None]
  - ALANINE AMINOTRANSFERASE INCREASED [None]
  - GAMMA-GLUTAMYLTRANSFERASE INCREASED [None]
  - BLOOD ALKALINE PHOSPHATASE INCREASED [None]
  - ACUTE FEBRILE NEUTROPHILIC DERMATOSIS [None]
  - C-REACTIVE PROTEIN INCREASED [None]
  - SKIN LESION [None]
  - ASPARTATE AMINOTRANSFERASE INCREASED [None]
  - PRURITUS [None]
  - LYMPHOPENIA [None]
